FAERS Safety Report 4703548-5 (Version None)
Quarter: 2005Q2

REPORT INFORMATION
  Report Type: 
  Country: None (occurrence: None)
  Receive Date: 20050630
  Receipt Date: 20050620
  Transmission Date: 20051028
  Serious: Yes (Other)
  Sender: FDA-Public Use
  Company Number: US-JNJFOC-20050505613

PATIENT
  Age: 47 Year
  Sex: Male

DRUGS (11)
  1. REMICADE [Suspect]
     Indication: CROHN'S DISEASE
     Route: 042
  2. PREDNISONE TAB [Concomitant]
  3. FESO4 [Concomitant]
  4. LANTUS [Concomitant]
  5. PROTONIX [Concomitant]
  6. AMBIEN [Concomitant]
  7. ASPIRIN [Concomitant]
  8. ASACOL [Concomitant]
  9. APAP TAB [Concomitant]
  10. PROMETHAZINE [Concomitant]
  11. INSULIN HUMULIN [Concomitant]

REACTIONS (1)
  - LUPUS-LIKE SYNDROME [None]
